FAERS Safety Report 6195129-4 (Version None)
Quarter: 2009Q2

REPORT INFORMATION
  Report Type: 
  Country: None (occurrence: None)
  Receive Date: 20090519
  Receipt Date: 20090512
  Transmission Date: 20091009
  Serious: No
  Sender: FDA-Public Use
  Company Number: US-JNJFOC-20090502931

PATIENT
  Sex: Female
  Weight: 58.97 kg

DRUGS (17)
  1. FENTANYL TRANSDERMAL SYSTEM [Suspect]
     Indication: MUSCULOSKELETAL PAIN
     Route: 062
  2. FENTANYL TRANSDERMAL SYSTEM [Suspect]
     Indication: CHEST PAIN
     Route: 062
  3. FENTANYL TRANSDERMAL SYSTEM [Suspect]
     Indication: PAIN IN EXTREMITY
     Dosage: 100 UG/HR PLUS 75 UG/HR
     Route: 062
  4. FENTANYL TRANSDERMAL SYSTEM [Suspect]
     Indication: MUSCULOSKELETAL PAIN
     Route: 062
  5. FENTANYL TRANSDERMAL SYSTEM [Suspect]
     Indication: CHEST PAIN
     Route: 062
  6. FENTANYL TRANSDERMAL SYSTEM [Suspect]
     Indication: PAIN IN EXTREMITY
     Route: 062
  7. NEURONTIN [Concomitant]
     Indication: NEURALGIA
     Route: 048
  8. LIPITOR [Concomitant]
     Indication: BLOOD CHOLESTEROL INCREASED
     Route: 048
  9. LEVOXYL [Concomitant]
     Indication: HYPOTHYROIDISM
     Route: 048
  10. TIZANIDINE HCL [Concomitant]
     Route: 048
  11. DHEA [Concomitant]
     Route: 048
  12. AMITRIPTLINE HYDROCHLORIDE TAB [Concomitant]
     Indication: DEPRESSION
     Route: 048
  13. PENTOXIFYLLINE [Concomitant]
     Route: 048
  14. ULTRAM [Concomitant]
     Indication: PAIN
     Route: 048
  15. MORPHINE SULFATE [Concomitant]
     Route: 048
  16. FENTORA [Concomitant]
     Indication: BREAKTHROUGH PAIN
     Dosage: AS NEEDED
     Route: 048
  17. AMITIZIA [Concomitant]
     Indication: CONSTIPATION
     Dosage: 24MCG AS NEEDED
     Route: 048

REACTIONS (3)
  - DRUG ADMINISTERED AT INAPPROPRIATE SITE [None]
  - DYSPNOEA [None]
  - WRONG TECHNIQUE IN DRUG USAGE PROCESS [None]
